FAERS Safety Report 5211942-1 (Version None)
Quarter: 2007Q1

REPORT INFORMATION
  Report Type: 
  Country: None (occurrence: None)
  Receive Date: 20070116
  Receipt Date: 20061227
  Transmission Date: 20070707
  Serious: Yes (Life-Threatening, Hospitalization)
  Sender: FDA-Public Use
  Company Number: 8019218

PATIENT
  Age: 22 Year
  Sex: Female
  Weight: 125 kg

DRUGS (7)
  1. KEPPRA [Suspect]
     Indication: EPILEPSY
     Dosage: 1500 MG /D PO
     Route: 048
     Dates: start: 20060430
  2. CARBAMAZEPINE [Suspect]
  3. HYDROMORPHONE HCL [Suspect]
  4. LAMICTAL [Suspect]
  5. LAMICTAL [Suspect]
  6. TAVOR /00273201/ [Concomitant]
  7. JODTHYROX [Concomitant]

REACTIONS (11)
  - COMA [None]
  - CONVULSION [None]
  - DRUG TOXICITY [None]
  - EFFUSION [None]
  - ELECTROCARDIOGRAM Q WAVES [None]
  - FATIGUE [None]
  - NIGHTMARE [None]
  - OVERDOSE [None]
  - PNEUMONIA ASPIRATION [None]
  - RESTLESSNESS [None]
  - RHABDOMYOLYSIS [None]
